FAERS Safety Report 9424494 (Version 1)
Quarter: 2013Q3

REPORT INFORMATION
  Report Type: Report from Study
  Country: CA (occurrence: CA)
  Receive Date: 20130729
  Receipt Date: 20130729
  Transmission Date: 20140515
  Serious: Yes (Congenital Anomaly, Other)
  Sender: FDA-Public Use
  Company Number: CA-JNJFOC-20130714538

PATIENT
  Age: 0 None
  Sex: Male
  Weight: .96 kg

DRUGS (1)
  1. SIMPONI [Suspect]
     Indication: RHEUMATOID ARTHRITIS
     Route: 064
     Dates: start: 201105

REACTIONS (5)
  - Premature baby [Not Recovered/Not Resolved]
  - Foetal exposure during pregnancy [Recovered/Resolved]
  - Hearing impaired [Unknown]
  - Spine malformation [Unknown]
  - Scoliosis [Unknown]
